FAERS Safety Report 5325016-2 (Version None)
Quarter: 2007Q2

REPORT INFORMATION
  Report Type: 
  Country: None (occurrence: None)
  Receive Date: 20070511
  Receipt Date: 20070511
  Transmission Date: 20071010
  Serious: Yes (Hospitalization)
  Sender: FDA-Public Use
  Company Number: None

PATIENT
  Sex: Female
  Weight: 61 kg

DRUGS (4)
  1. CISPLATIN [Suspect]
     Dosage: 79 MG
  2. DOXORUBICIN HYDROCHLORIDE [Suspect]
     Dosage: 71 MG
  3. G-CSF (FILGRASTIM, AMGEN) [Suspect]
     Dosage: 6 MG
  4. TAXOL [Suspect]
     Dosage: 253 MG

REACTIONS (12)
  - BLOOD CREATININE INCREASED [None]
  - CANDIDURIA [None]
  - DEEP VEIN THROMBOSIS [None]
  - FAECAL INCONTINENCE [None]
  - FATIGUE [None]
  - HAEMOGLOBIN DECREASED [None]
  - NEUTROPENIA [None]
  - OEDEMA PERIPHERAL [None]
  - PERFORMANCE STATUS DECREASED [None]
  - PULMONARY OEDEMA [None]
  - RECTAL HAEMORRHAGE [None]
  - URINARY TRACT INFECTION STAPHYLOCOCCAL [None]
